FAERS Safety Report 17224040 (Version 2)
Quarter: 2021Q1

REPORT INFORMATION
  Report Type: Report from Study
  Country: GB (occurrence: GB)
  Receive Date: 20200102
  Receipt Date: 20210107
  Transmission Date: 20210419
  Serious: Yes (Other)
  Sender: FDA-Public Use
  Company Number: GB-ROCHE-2511424

PATIENT

DRUGS (1)
  1. TENECTEPLASE [Suspect]
     Active Substance: TENECTEPLASE
     Indication: ISCHAEMIC STROKE
     Route: 042

REACTIONS (2)
  - Asthenia [Not Recovered/Not Resolved]
  - NIH stroke scale score increased [Not Recovered/Not Resolved]

NARRATIVE: CASE EVENT DATE: 20191220
